FAERS Safety Report 6455163-3 (Version None)
Quarter: 2009Q4

REPORT INFORMATION
  Report Type: 
  Country: None (occurrence: None)
  Receive Date: 20091119
  Receipt Date: 20091110
  Transmission Date: 20100525
  Serious: Yes (Hospitalization)
  Sender: FDA-Public Use
  Company Number: 2009-04705

PATIENT
  Age: 50 Year
  Sex: Female
  Weight: 73.8 kg

DRUGS (5)
  1. VELCADE [Suspect]
     Indication: MULTIPLE MYELOMA
     Dates: start: 20090701, end: 20091104
  2. CYCLOSPORINE [Suspect]
     Indication: MULTIPLE MYELOMA
  3. FLUDARABINE PHOSPHATE [Suspect]
     Indication: MULTIPLE MYELOMA
  4. MELPHALAN HYDROCHLORIDE [Suspect]
     Indication: MULTIPLE MYELOMA
  5. MYCOPHENOLATE MOFETIL [Suspect]
     Indication: MULTIPLE MYELOMA

REACTIONS (9)
  - BLOOD CREATININE INCREASED [None]
  - BLOOD UREA INCREASED [None]
  - BRONCHITIS [None]
  - CHEST PAIN [None]
  - DEEP VEIN THROMBOSIS [None]
  - HYPOTENSION [None]
  - MUCOSAL INFLAMMATION [None]
  - TACHYCARDIA [None]
  - VIRAL INFECTION [None]
